FAERS Safety Report 5796380-5 (Version None)
Quarter: 2008Q2

REPORT INFORMATION
  Report Type: 
  Country: None (occurrence: None)
  Receive Date: 20080630
  Receipt Date: 20080630
  Transmission Date: 20081010
  Serious: Yes (Life-Threatening)
  Sender: FDA-Public Use
  Company Number: None

PATIENT
  Age: 46 Year
  Sex: Female
  Weight: 90.7194 kg

DRUGS (2)
  1. KENALOG-40 [Suspect]
     Indication: SWELLING
     Dosage: 1 SHOT AS MUCH AS 3X A SHOTS 3CC 1 TIME USE
  2. DEXAMETHASONE [Suspect]
     Dosage: 1 SHOT AS MUCH AS 3X A SHOTS 3CC 1 TIME USE
     Dates: start: 20080118, end: 20080118

REACTIONS (14)
  - ALOPECIA [None]
  - ANXIETY [None]
  - DYSPNOEA [None]
  - FURUNCLE [None]
  - HYPOMENORRHOEA [None]
  - ILL-DEFINED DISORDER [None]
  - INFECTION [None]
  - INJECTION SITE DISCOLOURATION [None]
  - MENSTRUAL DISORDER [None]
  - MENSTRUATION IRREGULAR [None]
  - SKIN HYPERPIGMENTATION [None]
  - SKIN ULCER [None]
  - SLEEP DISORDER [None]
  - WEIGHT INCREASED [None]
